FAERS Safety Report 13699107 (Version 4)
Quarter: 2017Q3

REPORT INFORMATION
  Report Type: Spontaneous
  Country: US (occurrence: US)
  Receive Date: 20170628
  Receipt Date: 20170817
  Transmission Date: 20171127
  Serious: Yes (Death, Hospitalization)
  Sender: FDA-Public Use
  Company Number: US-VERTEX PHARMACEUTICALS-2017-003397

PATIENT
  Age: 24 Year
  Sex: Male

DRUGS (1)
  1. ORKAMBI [Suspect]
     Active Substance: IVACAFTOR\LUMACAFTOR
     Indication: CYSTIC FIBROSIS
     Dosage: 2 DF (200/125MG EACH), BID
     Route: 048

REACTIONS (4)
  - Death [Fatal]
  - Intestinal obstruction [Unknown]
  - Infective pulmonary exacerbation of cystic fibrosis [Unknown]
  - Malaise [Unknown]

NARRATIVE: CASE EVENT DATE: 20170604
